FAERS Safety Report 11966174 (Version 1)
Quarter: 2016Q1

REPORT INFORMATION
  Report Type: Spontaneous
  Country: None (occurrence: None)
  Receive Date: 20160126
  Receipt Date: 20160126
  Transmission Date: 20160526
  Serious: Yes (Other)
  Sender: FDA-Public Use
  Company Number: None

PATIENT
  Age: 22 Year
  Sex: Female
  Weight: 54.43 kg

DRUGS (2)
  1. MIRENA [Suspect]
     Active Substance: LEVONORGESTREL
  2. B12 SHOTS [Concomitant]
     Active Substance: CYANOCOBALAMIN

REACTIONS (4)
  - Dermatitis allergic [None]
  - Dermatitis atopic [None]
  - Dry skin [None]
  - Skin irritation [None]
